FAERS Safety Report 6523071-5 (Version None)
Quarter: 2009Q4

REPORT INFORMATION
  Report Type: 
  Country: None (occurrence: None)
  Receive Date: 20091222
  Receipt Date: 20091211
  Transmission Date: 20100525
  Serious: Yes (Other)
  Sender: FDA-Public Use
  Company Number: DSU-2009-02721

PATIENT
  Age: 34 Year
  Sex: Female
  Weight: 74.8435 kg

DRUGS (2)
  1. WELCHOL [Suspect]
     Indication: DIARRHOEA
     Dosage: 3750 MG (1875 MG, BID), PER ORAL; 2500 MG (1250 MG, BID) PER ORAL
     Route: 048
     Dates: start: 20080101, end: 20090101
  2. WELCHOL [Suspect]
     Indication: DIARRHOEA
     Dosage: 3750 MG (1875 MG, BID), PER ORAL; 2500 MG (1250 MG, BID) PER ORAL
     Route: 048
     Dates: start: 20090101

REACTIONS (5)
  - CONDITION AGGRAVATED [None]
  - FALL [None]
  - MULTIPLE SCLEROSIS [None]
  - OFF LABEL USE [None]
  - SPINAL FRACTURE [None]
